FAERS Safety Report 8612734 (Version 4)
Quarter: 2012Q4

REPORT INFORMATION
  Report Type: Report from Study
  Country: US (occurrence: US)
  Receive Date: 20120613
  Receipt Date: 20120921
  Transmission Date: 20130627
  Serious: Yes (Disabling, Other)
  Sender: FDA-Public Use
  Company Number: US-JNJFOC-20120604194

PATIENT
  Age: 51 Year
  Sex: Female
  Weight: 57.61 kg

DRUGS (6)
  1. SIMPONI [Suspect]
     Indication: RHEUMATOID ARTHRITIS
     Route: 058
     Dates: start: 201101, end: 20120301
  2. ARAVA [Concomitant]
     Indication: RHEUMATOID ARTHRITIS
     Dates: start: 200107
  3. MOBIC [Concomitant]
     Indication: RHEUMATOID ARTHRITIS
     Dates: start: 200007
  4. LEVOXYL [Concomitant]
     Indication: THYROID DISORDER
  5. PRILOSEC [Concomitant]
     Indication: GASTROOESOPHAGEAL REFLUX DISEASE
  6. ESTRADIOL [Concomitant]

REACTIONS (9)
  - Nervous system disorder [Recovering/Resolving]
  - Intervertebral disc protrusion [Recovering/Resolving]
  - Sensory loss [Recovering/Resolving]
  - Urinary incontinence [Recovering/Resolving]
  - Faecal incontinence [Recovering/Resolving]
  - Hypoaesthesia [Recovering/Resolving]
  - Gait disturbance [Recovering/Resolving]
  - Monoclonal gammopathy [Unknown]
  - Back pain [Recovering/Resolving]
